FAERS Safety Report 9397071 (Version 1)
Quarter: 2013Q3

REPORT INFORMATION
  Report Type: Spontaneous
  Country: US (occurrence: US)
  Receive Date: 20130712
  Receipt Date: 20130712
  Transmission Date: 20140515
  Serious: Yes (Other)
  Sender: FDA-Public Use
  Company Number: US-PFIZER INC-2013203427

PATIENT
  Age: 34 Year
  Sex: Female

DRUGS (2)
  1. CHANTIX [Suspect]
     Dosage: 0.5 MG (STARTING MONTH PACK)
     Dates: start: 20070628
  2. CHANTIX [Suspect]
     Dosage: 1 MG, 2X/DAY (CONTINUING MONTH PACK)
     Dates: start: 20070730, end: 20070829

REACTIONS (1)
  - Convulsion [Unknown]
